FAERS Safety Report 23430460 (Version 1)
Quarter: 2024Q1

REPORT INFORMATION
  Report Type: Spontaneous
  Country: SE (occurrence: SE)
  Receive Date: 20240123
  Receipt Date: 20240123
  Transmission Date: 20240410
  Serious: Yes (Other)
  Sender: FDA-Public Use
  Company Number: None

PATIENT
  Age: 43 Year
  Sex: Female
  Weight: 79 kg

DRUGS (2)
  1. VAGIFEM [Interacting]
     Active Substance: ESTRADIOL
     Indication: Premature menopause
     Dosage: 10 ?G, BIW(10 MICROGRAMS 1 TABLET / 2 TIMES PER WEEK)
     Route: 067
     Dates: start: 20190901, end: 20221014
  2. LAMOTRIGINE [Interacting]
     Active Substance: LAMOTRIGINE
     Indication: Product used for unknown indication
     Dosage: 200 MG 1 TABLET 200 MG EVENING, 1 TABLET 100 MG MORNING
     Route: 048
     Dates: start: 20071001

REACTIONS (3)
  - Bipolar disorder [Recovered/Resolved]
  - Drug interaction [Recovered/Resolved]
  - Therapeutic product effect decreased [Recovered/Resolved]

NARRATIVE: CASE EVENT DATE: 20191101
